FAERS Safety Report 8470720-0 (Version None)
Quarter: 2012Q2

REPORT INFORMATION
  Report Type: 
  Country: None (occurrence: None)
  Receive Date: 20120627
  Receipt Date: 20120615
  Transmission Date: 20120825
  Serious: Yes (Hospitalization)
  Sender: FDA-Public Use
  Company Number: US-MYLANLABS-2012S1012342

PATIENT
  Age: 65 Year
  Sex: Female

DRUGS (10)
  1. OMEPRAZOLE [Suspect]
     Indication: ABDOMINAL DISCOMFORT
     Route: 048
     Dates: start: 20120501, end: 20120501
  2. AMLODIPINE [Suspect]
     Dates: start: 20120501, end: 20120501
  3. LEVOTHYROXINE SODIUM [Suspect]
     Indication: HYPOTHYROIDISM
     Route: 048
     Dates: start: 20120501, end: 20120501
  4. CITALOPRAM HYDROBROMIDE [Suspect]
     Dates: start: 20120501, end: 20120501
  5. ISOSORBIDE MONONITRATE [Suspect]
     Dates: start: 20120501, end: 20120501
  6. PRAVASTATIN [Suspect]
     Dates: start: 20120501, end: 20120501
  7. METFORMIN HCL [Suspect]
     Dates: start: 20120501, end: 20120501
  8. HYDROCHLOROTHIAZIDE [Suspect]
     Dates: start: 20120501, end: 20120501
  9. LISINOPRIL [Suspect]
     Dates: start: 20120501, end: 20120501
  10. LORAZEPAM [Suspect]
     Dates: start: 20120501, end: 20120501

REACTIONS (1)
  - LOSS OF CONSCIOUSNESS [None]
